FAERS Safety Report 9063618 (Version 1)
Quarter: 2013Q1

REPORT INFORMATION
  Report Type: Report from Study
  Country: US (occurrence: US)
  Receive Date: 20130131
  Receipt Date: 20130131
  Transmission Date: 20140127
  Serious: No
  Sender: FDA-Public Use
  Company Number: US-ABBOTT-12P-163-1004926-00

PATIENT
  Age: 51 Year
  Sex: Female

DRUGS (10)
  1. HUMIRA [Suspect]
     Indication: CROHN^S DISEASE
     Dosage: STARTING DOSE
     Route: 058
     Dates: start: 20121030, end: 20121030
  2. HUMIRA [Suspect]
     Dates: start: 201211
  3. PREDNISONE [Concomitant]
     Indication: CROHN^S DISEASE
     Dosage: 15 MG DAILY
  4. LYRICA [Concomitant]
     Indication: NEURALGIA
     Dosage: 100 MG, 1 TAB THREE TIMES A DAY
  5. COZAAR [Concomitant]
     Indication: BLOOD PRESSURE
     Dosage: 50 MG, 1 TAB TWICE DAILY
  6. BENZONATATE [Concomitant]
     Indication: MUSCLE RELAXANT THERAPY
     Dosage: AS NEEDED, NOT MORE THAN 3 PER DAY
  7. FLONASE [Concomitant]
     Indication: RHINITIS ALLERGIC
     Dosage: 2 SPRAYS, PER NOSTRIL DAILY
  8. MUSCADINE GRAPE SEED [Concomitant]
     Indication: GASTROINTESTINAL DISORDER
     Dosage: 2 DAILY
  9. BLACK COHOSH [Concomitant]
     Indication: HOT FLUSH
     Dosage: 1 DAILY
  10. VITAMIN B6 [Concomitant]
     Indication: CARPAL TUNNEL SYNDROME
     Dosage: 1 DAILY

REACTIONS (14)
  - Constipation [Not Recovered/Not Resolved]
  - Vomiting [Not Recovered/Not Resolved]
  - Headache [Not Recovered/Not Resolved]
  - Abdominal pain upper [Not Recovered/Not Resolved]
  - Hypoaesthesia [Not Recovered/Not Resolved]
  - Paraesthesia [Not Recovered/Not Resolved]
  - Pain in extremity [Not Recovered/Not Resolved]
  - Pain in extremity [Not Recovered/Not Resolved]
  - Musculoskeletal pain [Not Recovered/Not Resolved]
  - Pain [Not Recovered/Not Resolved]
  - Mucosa vesicle [Not Recovered/Not Resolved]
  - Ocular hyperaemia [Not Recovered/Not Resolved]
  - Eye pain [Not Recovered/Not Resolved]
  - Eye discharge [Not Recovered/Not Resolved]
